FAERS Safety Report 5705994-X (Version None)
Quarter: 2008Q2

REPORT INFORMATION
  Report Type: 
  Country: None (occurrence: None)
  Receive Date: 20080415
  Receipt Date: 20080403
  Transmission Date: 20081010
  Serious: Yes (Hospitalization, Other)
  Sender: FDA-Public Use
  Company Number: GB-PFIZER INC-2006150476

PATIENT
  Age: 72 Year
  Sex: Female

DRUGS (4)
  1. SPIRONOLACTONE [Suspect]
     Indication: HYPERTENSION
  2. LISINOPRIL [Suspect]
     Indication: HYPERTENSION
  3. FELODIPINE [Concomitant]
     Route: 048
  4. BENDROFLUMETHIAZIDE [Concomitant]
     Route: 048

REACTIONS (2)
  - BLOOD CREATININE INCREASED [None]
  - HYPERKALAEMIA [None]
